FAERS Safety Report 17058908 (Version 2)
Quarter: 2019Q4

REPORT INFORMATION
  Report Type: Spontaneous
  Country: US (occurrence: US)
  Receive Date: 20191121
  Receipt Date: 20191202
  Transmission Date: 20200122
  Serious: No
  Sender: FDA-Public Use
  Company Number: US-PFIZER INC-2019502056

PATIENT
  Age: 63 Year
  Sex: Male

DRUGS (1)
  1. MOTRIN [Suspect]
     Active Substance: IBUPROFEN
     Indication: PULMONARY PAIN
     Dosage: 800 (UNIT OF MEASURE UNSPECIFIED)

REACTIONS (1)
  - Pain [Unknown]
